FAERS Safety Report 10713473 (Version 1)
Quarter: 2015Q1

REPORT INFORMATION
  Report Type: Spontaneous
  Country: US (occurrence: None)
  Receive Date: 20150114
  Receipt Date: 20150114
  Transmission Date: 20150721
  Serious: Yes (Hospitalization)
  Sender: FDA-Public Use
  Company Number: None

PATIENT
  Sex: Male
  Weight: 85.7 kg

DRUGS (1)
  1. COLCHICINE. [Suspect]
     Active Substance: COLCHICINE
     Indication: GOUT
     Route: 048
     Dates: start: 20141218, end: 20141223

REACTIONS (10)
  - Abdominal pain [None]
  - Leukocytosis [None]
  - Diarrhoea [None]
  - Nausea [None]
  - Vomiting [None]
  - Hypophagia [None]
  - Renal impairment [None]
  - Blood urea increased [None]
  - Dehydration [None]
  - Blood creatinine increased [None]

NARRATIVE: CASE EVENT DATE: 20141220
